FAERS Safety Report 9882504 (Version 2)
Quarter: 2014Q1

REPORT INFORMATION
  Report Type: Report from Study
  Country: IT (occurrence: IT)
  Receive Date: 20140207
  Receipt Date: 20140325
  Transmission Date: 20141002
  Serious: Yes (Hospitalization)
  Sender: FDA-Public Use
  Company Number: PHHY2014IT014427

PATIENT
  Age: 22 Year
  Sex: Female
  Weight: 99 kg

DRUGS (4)
  1. CERTICAN [Suspect]
     Indication: IMMUNOSUPPRESSION
     Dosage: 1 MG, UNK
     Route: 048
     Dates: start: 20070412
  2. ANGIOTENSIN II ANTAGONISTS [Concomitant]
     Indication: HYPERCHOLESTEROLAEMIA
     Dates: start: 20060223
  3. ESKIM [Concomitant]
     Dosage: 1000 MG
     Route: 048
     Dates: start: 20060223
  4. LOPRESSOR [Concomitant]
     Dosage: 100 MG, UNK
     Route: 048
     Dates: start: 20070903

REACTIONS (2)
  - Arteriosclerosis coronary artery [Not Recovered/Not Resolved]
  - Coronary artery stenosis [Not Recovered/Not Resolved]
